FAERS Safety Report 9613089 (Version 2)
Quarter: 2013Q4

REPORT INFORMATION
  Report Type: Spontaneous
  Country: TR (occurrence: TR)
  Receive Date: 20131010
  Receipt Date: 20131010
  Transmission Date: 20140711
  Serious: Yes (Other)
  Sender: FDA-Public Use
  Company Number: TR-BANPHARM-20131781

PATIENT
  Sex: 0

DRUGS (1)
  1. VALPROIC ACID UNKNOWN PRODUCT [Suspect]
     Indication: CONVULSION
     Dosage: 20 MG/KG, QD
     Route: 048

REACTIONS (1)
  - Convulsion [Unknown]
